FAERS Safety Report 10443692 (Version 2)
Quarter: 2014Q3

REPORT INFORMATION
  Report Type: Report from Study
  Country: PT (occurrence: PT)
  Receive Date: 20140910
  Receipt Date: 20140910
  Transmission Date: 20150326
  Serious: Yes (Death, Other)
  Sender: FDA-Public Use
  Company Number: PT-ACCORD-025771

PATIENT
  Age: 63 Year
  Sex: Male

DRUGS (9)
  1. BASILIXIMAB [Suspect]
     Active Substance: BASILIXIMAB
     Indication: RENAL TRANSPLANT
  2. PREDNISOLONE. [Suspect]
     Active Substance: PREDNISOLONE
     Indication: RENAL TRANSPLANT
  3. SULFAMETHOXAZOLE/TRIMETHOPRIM [Concomitant]
     Indication: INFECTION PROPHYLAXIS
  4. LAMIVUDINE. [Concomitant]
     Active Substance: LAMIVUDINE
     Indication: ANTIRETROVIRAL THERAPY
  5. ABACAVIR/ABACAVIR SUCCINATE/ABACAVIR SULFATE [Concomitant]
     Indication: ANTIRETROVIRAL THERAPY
  6. NYSTATIN/NYSTATIN/LIPOSOME [Concomitant]
     Indication: INFECTION PROPHYLAXIS
  7. RALTEGRAVIR [Concomitant]
     Active Substance: RALTEGRAVIR
     Indication: ANTIRETROVIRAL THERAPY
  8. MYCOPHENOLIC ACID [Suspect]
     Active Substance: MYCOPHENOLIC ACID
     Indication: RENAL TRANSPLANT
  9. TACROLIMUS. [Suspect]
     Active Substance: TACROLIMUS
     Indication: RENAL TRANSPLANT
     Dosage: 0.5 MG/D EACH 7 TO 10 DAYS

REACTIONS (5)
  - Pneumonia influenzal [Unknown]
  - Bronchopulmonary aspergillosis [Fatal]
  - Oral herpes [Unknown]
  - Pyelonephritis [Unknown]
  - Psychotic disorder [Recovered/Resolved]
